FAERS Safety Report 5466090-2 (Version None)
Quarter: 2007Q3

REPORT INFORMATION
  Report Type: 
  Country: None (occurrence: None)
  Receive Date: 20070919
  Receipt Date: 20070907
  Transmission Date: 20080115
  Serious: Yes (Hospitalization)
  Sender: FDA-Public Use
  Company Number: 2007-01953

PATIENT
  Age: 70 Year
  Sex: Male
  Weight: 86 kg

DRUGS (10)
  1. VELCADE [Suspect]
     Indication: MESOTHELIOMA MALIGNANT
     Dosage: 1.30 MG/M2, INTRAVENOUS
     Route: 042
     Dates: start: 20070514, end: 20070611
  2. CISPLATIN [Suspect]
     Indication: MESOTHELIOMA MALIGNANT
     Dosage: 75.00 MG/M2, INTRAVENOUS
     Route: 042
     Dates: start: 20070514, end: 20070604
  3. MS CONTIN [Interacting]
  4. MS DIRECT [Concomitant]
  5. PANTOZOL               (PANTOPRAZOLE SODIUM) [Concomitant]
  6. CRESTOR [Concomitant]
  7. TENORMIN [Concomitant]
  8. METATOP                 (LORMETAZEPAM) [Concomitant]
  9. MEDROL [Concomitant]
  10. MOVICOL  (SODIUM BICARBONATE, SODIUM CHLORIDE, MACROGOL, POTASSIUM CHL [Concomitant]

REACTIONS (3)
  - BRONCHITIS [None]
  - DRUG TOXICITY [None]
  - HERPES VIRUS INFECTION [None]
